FAERS Safety Report 9753744 (Version 1)
Quarter: 2013Q4

REPORT INFORMATION
  Report Type: Spontaneous
  Country: US (occurrence: US)
  Receive Date: 20131213
  Receipt Date: 20131213
  Transmission Date: 20140711
  Serious: No
  Sender: FDA-Public Use
  Company Number: US-GILEAD-2010-0026614

PATIENT
  Sex: Male
  Weight: 119.29 kg

DRUGS (7)
  1. LETAIRIS [Suspect]
     Indication: PULMONARY ARTERIAL HYPERTENSION
     Route: 048
     Dates: start: 20080208, end: 20100121
  2. REVATIO [Concomitant]
  3. TORSEMIDE [Concomitant]
  4. COUMADIN [Concomitant]
  5. LORAZEPAM [Concomitant]
  6. SPIRONOLACTONE [Concomitant]
  7. POTASSIUM CHLORIDE [Concomitant]

REACTIONS (1)
  - Liver function test abnormal [Unknown]
